FAERS Safety Report 14919109 (Version 1)
Quarter: 2018Q2

REPORT INFORMATION
  Report Type: Spontaneous
  Country: US (occurrence: US)
  Receive Date: 20180521
  Receipt Date: 20180521
  Transmission Date: 20180711
  Serious: Yes (Other)
  Sender: FDA-Public Use
  Company Number: US-009507513-1805USA006266

PATIENT
  Age: 21 Year
  Sex: Female
  Weight: 60.6 kg

DRUGS (1)
  1. NEXPLANON [Suspect]
     Active Substance: ETONOGESTREL
     Dosage: 1 IMPLANT, RIGHT (NON-DOMINANT ARM)
     Route: 059
     Dates: start: 20160418, end: 20180511

REACTIONS (8)
  - Hypoaesthesia [Recovering/Resolving]
  - Complication associated with device [Recovered/Resolved]
  - Device difficult to use [Recovered/Resolved]
  - Procedural complication [Unknown]
  - Menometrorrhagia [Unknown]
  - Device dislocation [Recovered/Resolved]
  - Paraesthesia [Unknown]
  - Neurectomy [Unknown]

NARRATIVE: CASE EVENT DATE: 20180131
